FAERS Safety Report 12840690 (Version 1)
Quarter: 2016Q4

REPORT INFORMATION
  Report Type: Spontaneous
  Country: FR (occurrence: FR)
  Receive Date: 20161012
  Receipt Date: 20161012
  Transmission Date: 20170207
  Serious: Yes (Other)
  Sender: FDA-Public Use
  Company Number: FR-B. BRAUN MEDICAL INC.-1058274

PATIENT
  Age: 48 Year
  Sex: Male

DRUGS (19)
  1. METRONIDAZOLE. [Suspect]
     Active Substance: METRONIDAZOLE
     Route: 041
     Dates: start: 20160716, end: 20160722
  2. CEFTRIAXONE. [Suspect]
     Active Substance: CEFTRIAXONE
     Route: 041
     Dates: start: 20160716, end: 20160722
  3. PROPRANOLOL [Concomitant]
     Active Substance: PROPRANOLOL\PROPRANOLOL HYDROCHLORIDE
  4. VALSARTAN AND HYDROCHLOROTHIAZIDE [Concomitant]
     Active Substance: HYDROCHLOROTHIAZIDE\VALSARTAN
  5. MEROPENEM. [Suspect]
     Active Substance: MEROPENEM
     Route: 041
     Dates: start: 20160728, end: 20160804
  6. PANTOPRAZOLE [Concomitant]
     Active Substance: PANTOPRAZOLE SODIUM
  7. FOSCAVIR [Suspect]
     Active Substance: FOSCARNET SODIUM
     Route: 041
     Dates: start: 20160722, end: 20160804
  8. CICLOSPORIN [Concomitant]
     Active Substance: CYCLOSPORINE
  9. SERETIDE (FLUTICASONE PROPIONATE AND SALMETEROL) [Concomitant]
  10. VFEND [Suspect]
     Active Substance: VORICONAZOLE
     Route: 041
     Dates: start: 20160723, end: 20160726
  11. CHOLECALCIFEROL [Concomitant]
     Active Substance: CHOLECALCIFEROL
  12. CEFOTAXIME [Suspect]
     Active Substance: CEFOTAXIME SODIUM
     Route: 041
     Dates: start: 20160716, end: 20160722
  13. VALGANCICLOVIR (VALACYCLOVIR HYDROCHLORIDE) [Suspect]
     Active Substance: VALACYCLOVIR HYDROCHLORIDE
     Route: 048
     Dates: start: 20160721, end: 20160801
  14. DAFALGAN (PARACETAMOL) [Concomitant]
  15. BACTRIM [Suspect]
     Active Substance: SULFAMETHOXAZOLE\TRIMETHOPRIM
     Route: 041
     Dates: start: 20160727, end: 20160804
  16. LEVETIRACETAM. [Suspect]
     Active Substance: LEVETIRACETAM
     Route: 048
     Dates: start: 20160727, end: 20160906
  17. CELLCEPT [Concomitant]
     Active Substance: MYCOPHENOLATE MOFETIL\MYCOPHENOLATE MOFETIL HYDROCHLORIDE
  18. PREDNISOLONE. [Concomitant]
     Active Substance: PREDNISOLONE
  19. PREGABALIN. [Concomitant]
     Active Substance: PREGABALIN

REACTIONS (2)
  - Thrombocytopenia [Recovered/Resolved]
  - Anaemia [Not Recovered/Not Resolved]

NARRATIVE: CASE EVENT DATE: 20160721
